FAERS Safety Report 6832544-7 (Version None)
Quarter: 2010Q3

REPORT INFORMATION
  Report Type: 
  Country: None (occurrence: None)
  Receive Date: 20100712
  Receipt Date: 20070315
  Transmission Date: 20110219
  Serious: No
  Sender: FDA-Public Use
  Company Number: US-PFIZER INC-2007021095

PATIENT
  Sex: Male
  Weight: 79.83 kg

DRUGS (4)
  1. CHANTIX [Suspect]
     Indication: SMOKING CESSATION THERAPY
     Dates: start: 20070101
  2. VITAMINS [Concomitant]
  3. PAXIL [Concomitant]
  4. NEXIUM [Concomitant]

REACTIONS (10)
  - CHANGE OF BOWEL HABIT [None]
  - CONSTIPATION [None]
  - FLATULENCE [None]
  - METABOLIC DISORDER [None]
  - MIDDLE INSOMNIA [None]
  - NAUSEA [None]
  - NIGHTMARE [None]
  - POOR QUALITY SLEEP [None]
  - SLEEP TALKING [None]
  - WEIGHT INCREASED [None]
